FAERS Safety Report 9224378 (Version 3)
Quarter: 2013Q2

REPORT INFORMATION
  Report Type: Spontaneous
  Country: US (occurrence: US)
  Receive Date: 20130411
  Receipt Date: 20130516
  Transmission Date: 20140414
  Serious: No
  Sender: FDA-Public Use
  Company Number: US-009507513-1304USA002294

PATIENT
  Age: 34 Year
  Sex: Female
  Weight: 63.49 kg

DRUGS (2)
  1. PROVENTIL [Suspect]
     Indication: ASTHMA
     Dosage: 2 PUFFS EVERY 4 TO 6 HOURS AS NEEDED
     Route: 055
     Dates: start: 20130325
  2. ALBUTEROL [Concomitant]
     Indication: ASTHMA
     Dosage: TOTAL DAILY DOSE 4
     Route: 048
     Dates: start: 20130325

REACTIONS (3)
  - Wheezing [Recovering/Resolving]
  - Drug dose omission [Unknown]
  - Product quality issue [Unknown]
